FAERS Safety Report 13428746 (Version 1)
Quarter: 2017Q2

REPORT INFORMATION
  Report Type: Spontaneous
  Country: CN (occurrence: CN)
  Receive Date: 20170411
  Receipt Date: 20170411
  Transmission Date: 20170830
  Serious: Yes (Hospitalization)
  Sender: FDA-Public Use
  Company Number: CN-ELI_LILLY_AND_COMPANY-CN201704002128

PATIENT
  Age: 51 Year
  Sex: Male
  Weight: 71 kg

DRUGS (2)
  1. HUMALOG MIX75/25 [Suspect]
     Active Substance: INSULIN LISPRO
     Indication: DIABETES MELLITUS
     Dosage: UNK, BID
     Route: 058
     Dates: start: 20161212
  2. ACARBOSE. [Concomitant]
     Active Substance: ACARBOSE
     Dosage: UNK, QD

REACTIONS (1)
  - Blood glucose increased [Unknown]
